FAERS Safety Report 8122883-4 (Version None)
Quarter: 2012Q1

REPORT INFORMATION
  Report Type: 
  Country: None (occurrence: None)
  Receive Date: 20120208
  Receipt Date: 20120131
  Transmission Date: 20120608
  Serious: Yes (Hospitalization, Other)
  Sender: FDA-Public Use
  Company Number: PR-ABBOTT-12P-131-0900269-00

PATIENT
  Sex: Female
  Weight: 69.008 kg

DRUGS (4)
  1. SYNTHROID [Suspect]
  2. SYNTHROID [Suspect]
     Route: 048
     Dates: start: 20120129
  3. SYNTHROID [Suspect]
     Indication: HYPOTHYROIDISM
     Route: 048
  4. SYNTHROID [Suspect]

REACTIONS (5)
  - DIZZINESS [None]
  - DYSARTHRIA [None]
  - INCOHERENT [None]
  - EPILEPSY [None]
  - UNRESPONSIVE TO STIMULI [None]
